FAERS Safety Report 8618747-X (Version None)
Quarter: 2012Q3

REPORT INFORMATION
  Report Type: 
  Country: None (occurrence: None)
  Receive Date: 20120810
  Receipt Date: 20120802
  Transmission Date: 20120928
  Serious: Yes (Death)
  Sender: FDA-Public Use
  Company Number: ADR-2010-9445

PATIENT
  Sex: Female

DRUGS (4)
  1. LIORESAL [Suspect]
     Indication: PAIN
     Dosage: UNK MCG, DAILY, INTRATH
  2. DILAUDID [Concomitant]
  3. DROPERIDOL [Concomitant]
  4. BUPIVACAINE HCL [Concomitant]

REACTIONS (3)
  - DEVICE RELATED INFECTION [None]
  - CEREBROVASCULAR ACCIDENT [None]
  - SEPSIS [None]
